FAERS Safety Report 22151643 (Version 1)
Quarter: 2023Q1

REPORT INFORMATION
  Report Type: Spontaneous
  Country: US (occurrence: US)
  Receive Date: 20230329
  Receipt Date: 20230329
  Transmission Date: 20230417
  Serious: Yes (Other)
  Sender: FDA-Public Use
  Company Number: ALC2023US001589

PATIENT
  Age: 83 Year
  Sex: Male

DRUGS (2)
  1. ISOPTO ATROPINE [Suspect]
     Active Substance: ATROPINE SULFATE
     Indication: Salivary hypersecretion
     Route: 060
  2. CARBIDOPA\LEVODOPA [Suspect]
     Active Substance: CARBIDOPA\LEVODOPA
     Indication: Parkinson^s disease
     Route: 065

REACTIONS (2)
  - Delirium [Recovering/Resolving]
  - Off label use [Unknown]
